FAERS Safety Report 5259089-2 (Version None)
Quarter: 2007Q1

REPORT INFORMATION
  Report Type: 
  Country: None (occurrence: None)
  Receive Date: 20070308
  Receipt Date: 20070226
  Transmission Date: 20070707
  Serious: Yes (Other)
  Sender: FDA-Public Use
  Company Number: CH-PFIZER INC-2006126841

PATIENT
  Sex: Female
  Weight: 65 kg

DRUGS (7)
  1. ATORVASTATIN CALCIUM [Suspect]
     Indication: AMAUROSIS FUGAX
     Route: 048
     Dates: start: 20060901, end: 20060925
  2. ATORVASTATIN CALCIUM [Suspect]
     Indication: HYPERCHOLESTEROLAEMIA
  3. ACETYLSALICYLIC ACID SRT [Concomitant]
  4. CALCIMAGON [Concomitant]
  5. MEFENAMIC ACID [Concomitant]
  6. MAGNESIUM [Concomitant]
  7. NEXIUM [Concomitant]

REACTIONS (4)
  - ABDOMINAL PAIN UPPER [None]
  - HEPATOMEGALY [None]
  - LIVER FUNCTION TEST ABNORMAL [None]
  - NAUSEA [None]
